FAERS Safety Report 6241217-3 (Version None)
Quarter: 2009Q2

REPORT INFORMATION
  Report Type: 
  Country: None (occurrence: None)
  Receive Date: 20090619
  Receipt Date: 20090619
  Transmission Date: 20091009
  Serious: No
  Sender: FDA-Public Use
  Company Number: None

PATIENT
  Age: 26 Year
  Sex: Male
  Weight: 76.2043 kg

DRUGS (2)
  1. ZICAM ALLERGY RELIEF GEL SWAB [Suspect]
     Indication: MULTIPLE ALLERGIES
     Dosage: ONE SPRAY IN EACH NOSTRIL EVERY 4 HRS INHAL
     Route: 055
     Dates: start: 20090614, end: 20090617
  2. ZICAM NO-DRIP LIQUID NASAL GEL [Suspect]
     Indication: MULTIPLE ALLERGIES
     Dosage: ONCE IN EACH NOSTRIL EVERY 4 HRS INHAL
     Route: 055
     Dates: start: 20090614, end: 20090617

REACTIONS (2)
  - PAROSMIA [None]
  - PRODUCT QUALITY ISSUE [None]
